FAERS Safety Report 6966240-2 (Version None)
Quarter: 2010Q3

REPORT INFORMATION
  Report Type: 
  Country: None (occurrence: None)
  Receive Date: 20100903
  Receipt Date: 20100825
  Transmission Date: 20110219
  Serious: Yes (Death)
  Sender: FDA-Public Use
  Company Number: FR-GENENTECH-305953

PATIENT
  Sex: Male

DRUGS (5)
  1. MABTHERA [Suspect]
     Indication: VASCULITIS NECROTISING
     Dosage: 1 G, UNK
     Route: 042
     Dates: start: 20071102, end: 20071120
  2. CORTANCYL [Suspect]
     Indication: MICROSCOPIC POLYANGIITIS
     Dosage: 60 MG, UNK
     Route: 048
     Dates: start: 20070824
  3. CORTANCYL [Suspect]
     Dosage: UNK MG, UNK
     Route: 048
     Dates: end: 20080105
  4. ENDOXAN [Suspect]
     Indication: VASCULITIS NECROTISING
     Dosage: 100 MG, UNK
     Route: 048
     Dates: start: 20071026
  5. ENDOXAN [Suspect]
     Dosage: UNK
     Route: 048
     Dates: start: 20070910

REACTIONS (3)
  - LUNG DISORDER [None]
  - MULTI-ORGAN FAILURE [None]
  - SEPTIC SHOCK [None]
